FAERS Safety Report 19269400 (Version 1)
Quarter: 2021Q2

REPORT INFORMATION
  Report Type: Spontaneous
  Country: JP (occurrence: JP)
  Receive Date: 20210518
  Receipt Date: 20210518
  Transmission Date: 20210717
  Serious: Yes (Hospitalization)
  Sender: FDA-Public Use
  Company Number: JP-MYLANLABS-2021M1028259

PATIENT
  Sex: Female

DRUGS (2)
  1. BETAMETHASONE. [Suspect]
     Active Substance: BETAMETHASONE
     Indication: COLITIS ULCERATIVE
     Dosage: THE MOTHER OCCASIONALLY RECEIVED BETAMETHASONE SUPPOSITORIES
     Route: 064
  2. MESALAZINE [Suspect]
     Active Substance: MESALAMINE
     Indication: COLITIS ULCERATIVE
     Dosage: 2000 MILLIGRAM, THE MOTHER RECEIVED HIGH?DOSE MESALAZINE (2000 MG) TWO TIMES A DAY
     Route: 064

REACTIONS (3)
  - Neonatal gastrointestinal haemorrhage [Recovered/Resolved]
  - Hypersensitivity [Recovered/Resolved]
  - Foetal exposure during pregnancy [Recovered/Resolved]
